FAERS Safety Report 10303199 (Version 2)
Quarter: 2014Q3

REPORT INFORMATION
  Report Type: Report from Study
  Country: BR (occurrence: BR)
  Receive Date: 20140714
  Receipt Date: 20140714
  Transmission Date: 20150326
  Serious: Yes (Other)
  Sender: FDA-Public Use
  Company Number: PHHY2014BR033548

PATIENT
  Sex: Female
  Weight: 60 kg

DRUGS (6)
  1. LIPITOR [Concomitant]
     Active Substance: ATORVASTATIN CALCIUM
     Indication: BLOOD CHOLESTEROL ABNORMAL
     Dosage: 1 DF, DAILY
     Dates: start: 2012
  2. GLUCOSAMIN CHONDROITIN             /01430901/ [Concomitant]
     Indication: OSTEOARTHRITIS
  3. ACLASTA [Suspect]
     Active Substance: ZOLEDRONIC ACID
     Indication: OSTEOPOROSIS
     Dosage: 1 DF, UNK
     Route: 042
     Dates: start: 20130219
  4. GLUCOSAMIN CHONDROITIN             /01430901/ [Concomitant]
     Indication: ARTHRITIS
     Dosage: 4 DF, DAILY
     Dates: start: 2012, end: 2013
  5. GLIFAGE [Concomitant]
     Active Substance: METFORMIN HYDROCHLORIDE
     Indication: DIABETES MELLITUS
     Dosage: 1 DF, DAILY
     Dates: start: 2012
  6. CALCIUM D3                         /00944201/ [Suspect]
     Active Substance: CALCIUM\CHOLECALCIFEROL
     Indication: OSTEOPOROSIS
     Dosage: 600 MG, UNK
     Route: 048
     Dates: start: 2012, end: 201312

REACTIONS (4)
  - Dehydration [Recovered/Resolved]
  - Malaise [Recovered/Resolved]
  - Vomiting [Recovered/Resolved]
  - Diarrhoea [Recovered/Resolved]
